FAERS Safety Report 10548608 (Version 1)
Quarter: 2014Q4

REPORT INFORMATION
  Report Type: Spontaneous
  Country: FR (occurrence: FR)
  Receive Date: 20141028
  Receipt Date: 20141028
  Transmission Date: 20150529
  Serious: Yes (Hospitalization)
  Sender: FDA-Public Use
  Company Number: FR-009507513-1410FRA012561

PATIENT
  Age: 4 Month
  Sex: Male

DRUGS (6)
  1. NIFLURIL (MORNIFLUMATE) [Suspect]
     Active Substance: MORNIFLUMATE
     Indication: PYREXIA
     Dosage: UNK
     Dates: start: 20030131, end: 20030204
  2. PEDIAZOLE [Suspect]
     Active Substance: ERYTHROMYCIN ETHYLSUCCINATE\SULFISOXAZOLE ACETYL
     Indication: PYREXIA
     Dosage: UNK
     Route: 048
     Dates: start: 20030215, end: 20030218
  3. PIVALONE [Suspect]
     Active Substance: TIXOCORTOL PIVALATE
     Indication: PYREXIA
     Dosage: UNK
     Dates: start: 20030131, end: 20030211
  4. MAXILASE [Suspect]
     Active Substance: PANCRELIPASE
     Dosage: UNK
     Route: 048
     Dates: start: 20030208, end: 20030211
  5. AUGMENTIN [Suspect]
     Active Substance: AMOXICILLIN\CLAVULANATE POTASSIUM
     Dosage: UNK
     Dates: start: 20030115, end: 20030305
  6. CELESTENE [Suspect]
     Active Substance: BETAMETHASONE
     Dosage: UNK
     Route: 048
     Dates: start: 20030208, end: 20030211

REACTIONS (1)
  - Stevens-Johnson syndrome [Recovered/Resolved]

NARRATIVE: CASE EVENT DATE: 20030217
